FAERS Safety Report 25504075 (Version 1)
Quarter: 2025Q3

REPORT INFORMATION
  Report Type: Spontaneous
  Country: EU (occurrence: EU)
  Receive Date: 20250702
  Receipt Date: 20250702
  Transmission Date: 20251020
  Serious: Yes (Life-Threatening, Hospitalization)
  Sender: DR REDDYS
  Company Number: None

PATIENT
  Age: 60 Year
  Sex: Male
  Weight: 70 kg

DRUGS (11)
  1. PANTOPRAZOLE SODIUM [Suspect]
     Active Substance: PANTOPRAZOLE SODIUM
     Indication: Gastrointestinal disorder
     Dosage: TABLET MSR 20MG / BRAND NAME NOT SPECIFIED /1X PER DAG 1 STUK (1 PIECE ONCE A DAY)
     Route: 048
     Dates: start: 20250514, end: 20250515
  2. FLUCLOXACILLIN [Suspect]
     Active Substance: FLUCLOXACILLIN
     Indication: Staphylococcal bacteraemia
     Dosage: INFVLST 120 MG/ML / BRAND NAME NOT SPECIFIED / 6000 MG/D
     Dates: start: 20250503, end: 20250506
  3. FLUCLOXACILLIN [Suspect]
     Active Substance: FLUCLOXACILLIN
     Dosage: 12000 MG/D
     Dates: start: 20250507, end: 20250513
  4. FLUCLOXACILLIN [Suspect]
     Active Substance: FLUCLOXACILLIN
     Dosage: 6000 MG/D
     Dates: start: 20250514, end: 20250515
  5. LISINOPRIL [Suspect]
     Active Substance: LISINOPRIL
     Indication: Angina pectoris
     Dosage: TABLET 10MG / BRAND NAME NOT SPECIFIED /1X PER DAG 1 STUK (1 PIECE ONCE A DAY)
     Route: 048
     Dates: start: 20220104, end: 20250520
  6. NAPROXEN [Suspect]
     Active Substance: NAPROXEN
     Indication: Arthralgia
     Dosage: TABLET 500MG / BRAND NAME NOT SPECIFIED /2 X PER DAG 500MG (2 X PER DAY 500MG)
     Route: 048
     Dates: start: 20250512, end: 20250520
  7. SIMVASTATIN [Concomitant]
     Active Substance: SIMVASTATIN
     Indication: Product used for unknown indication
     Route: 048
  8. QUETIAPINE [Concomitant]
     Active Substance: QUETIAPINE
     Indication: Product used for unknown indication
     Route: 048
  9. OLANZAPINE [Concomitant]
     Active Substance: OLANZAPINE
     Indication: Product used for unknown indication
     Route: 048
  10. METOPROLOL [Concomitant]
     Active Substance: METOPROLOL
     Indication: Product used for unknown indication
     Route: 048
  11. ASPIRIN [Concomitant]
     Active Substance: ASPIRIN
     Indication: Product used for unknown indication
     Route: 048

REACTIONS (2)
  - Angioedema [Recovered/Resolved]
  - Cutaneous vasculitis [Recovered/Resolved]

NARRATIVE: CASE EVENT DATE: 20250515
